FAERS Safety Report 6713945-4 (Version None)
Quarter: 2010Q2

REPORT INFORMATION
  Report Type: 
  Country: None (occurrence: None)
  Receive Date: 20100503
  Receipt Date: 20100421
  Transmission Date: 20101027
  Serious: Yes (Hospitalization)
  Sender: FDA-Public Use
  Company Number: 2010AP000839

PATIENT
  Age: 57 Year
  Sex: Female

DRUGS (14)
  1. CLARITHROMYCIN [Suspect]
     Indication: DRUG USE FOR UNKNOWN INDICATION
     Dates: end: 20091209
  2. ASPIRIN [Concomitant]
  3. CLARITHROMYCIN [Concomitant]
  4. CYCLIZINE (CYCLIZINE) [Concomitant]
  5. DEXAMETHASONE [Concomitant]
  6. OMEPRZOLE (OMERAZOLE) [Concomitant]
  7. TRAMADOL HCL [Concomitant]
  8. ASPIRIN [Concomitant]
  9. TRABECTEDIN (TRABECTEDIN) [Concomitant]
  10. ATENOLOL [Concomitant]
  11. DOXORUBICIN HCL [Concomitant]
  12. GRANISETRON (GRANISETRON) [Concomitant]
  13. YONDELIS (TRABECTE4DIN) [Suspect]
     Indication: SARCOMA METASTATIC
     Dosage: 1.2 MG/M2,POW INJ,IV
     Route: 042
     Dates: start: 20091001
  14. YONDELIS (TRABECTE4DIN) [Suspect]
     Indication: SARCOMA METASTATIC
     Dosage: 1.2 MG/M2,POW INJ,IV
     Route: 042
     Dates: start: 20091202

REACTIONS (7)
  - ALANINE AMINOTRANSFERASE INCREASED [None]
  - BLOOD CREATINE PHOSPHOKINASE INCREASED [None]
  - BLOOD CREATININE INCREASED [None]
  - DRUG INTERACTION [None]
  - DRUG INTOLERANCE [None]
  - LETHARGY [None]
  - MYALGIA [None]
